FAERS Safety Report 12867392 (Version 1)
Quarter: 2016Q4

REPORT INFORMATION
  Report Type: Spontaneous
  Country: US (occurrence: US)
  Receive Date: 20161020
  Receipt Date: 20161020
  Transmission Date: 20170207
  Serious: Yes (Other)
  Sender: FDA-Public Use
  Company Number: US-ASTRAZENECA-2012SE45883

PATIENT
  Age: 65 Year
  Sex: Male
  Weight: 68 kg

DRUGS (8)
  1. DEPAKOTE [Concomitant]
     Active Substance: DIVALPROEX SODIUM
     Indication: MOOD ALTERED
  2. ANTIDIABETIC DRUG [Concomitant]
     Active Substance: UNSPECIFIED INGREDIENT
     Indication: DIABETES MELLITUS
  3. CRESTOR [Suspect]
     Active Substance: ROSUVASTATIN CALCIUM
     Indication: PROPHYLAXIS
     Route: 048
  4. TAMSULOSIN [Concomitant]
     Active Substance: TAMSULOSIN
  5. FINASTERIDE. [Concomitant]
     Active Substance: FINASTERIDE
  6. METFORMIN [Concomitant]
     Active Substance: METFORMIN HYDROCHLORIDE
     Indication: DIABETES MELLITUS
  7. TEGRETOL [Concomitant]
     Active Substance: CARBAMAZEPINE
     Indication: MOOD ALTERED
     Dosage: 4.0DF UNKNOWN
  8. MULTIVITAMIN [Concomitant]
     Active Substance: VITAMINS
     Dosage: DAILY

REACTIONS (9)
  - Fall [Unknown]
  - Myalgia [Unknown]
  - Coronary artery occlusion [Unknown]
  - Muscle atrophy [Not Recovered/Not Resolved]
  - Muscle spasms [Unknown]
  - Hypertension [Unknown]
  - Fatigue [Unknown]
  - Peripheral artery occlusion [Unknown]
  - Balance disorder [Unknown]
